FAERS Safety Report 19029806 (Version 1)
Quarter: 2021Q1

REPORT INFORMATION
  Report Type: Spontaneous
  Country: SE (occurrence: SE)
  Receive Date: 20210319
  Receipt Date: 20210319
  Transmission Date: 20210420
  Serious: Yes (Hospitalization, Other)
  Sender: FDA-Public Use
  Company Number: SE-TEVA-2021-SE-1892002

PATIENT
  Sex: Female

DRUGS (2)
  1. CYMBALTA [Suspect]
     Active Substance: DULOXETINE HYDROCHLORIDE
     Route: 048
     Dates: start: 202009
  2. FLUOXETIN TEVA [Suspect]
     Active Substance: FLUOXETINE HYDROCHLORIDE
     Indication: TOXOPLASMOSIS
     Dosage: 20 MILLIGRAM DAILY; 20 MG DAILY (IN THE MORNING)
     Route: 048
     Dates: end: 202009

REACTIONS (2)
  - Suicidal ideation [Not Recovered/Not Resolved]
  - Anxiety [Not Recovered/Not Resolved]
